FAERS Safety Report 18197621 (Version 1)
Quarter: 2020Q3

REPORT INFORMATION
  Report Type: Spontaneous
  Country: US (occurrence: US)
  Receive Date: 20200826
  Receipt Date: 20200826
  Transmission Date: 20201103
  Serious: Yes (Life-Threatening, Hospitalization)
  Sender: FDA-Public Use
  Company Number: None

PATIENT
  Age: 52 Year
  Sex: Female
  Weight: 71.9 kg

DRUGS (1)
  1. AJOVY [Suspect]
     Active Substance: FREMANEZUMAB-VFRM
     Indication: OCCIPITAL NEURALGIA
     Dosage: ?          OTHER FREQUENCY:MONTHLY;?
     Route: 058
     Dates: start: 20200819, end: 20200819

REACTIONS (12)
  - Loss of consciousness [None]
  - Chest discomfort [None]
  - Feeling abnormal [None]
  - Urticaria [None]
  - Periorbital oedema [None]
  - Symptom recurrence [None]
  - Hypoaesthesia [None]
  - Paraesthesia [None]
  - Dysphagia [None]
  - Hypotension [None]
  - Lip swelling [None]
  - Throat tightness [None]

NARRATIVE: CASE EVENT DATE: 20200819
